FAERS Safety Report 24586816 (Version 1)
Quarter: 2024Q4

REPORT INFORMATION
  Report Type: Spontaneous
  Country: ES (occurrence: ES)
  Receive Date: 20241107
  Receipt Date: 20241107
  Transmission Date: 20250115
  Serious: Yes (Death)
  Sender: ALKEM
  Company Number: ES-ALKEM LABORATORIES LIMITED-ES-ALKEM-2024-22470

PATIENT
  Age: 67 Year
  Sex: Male

DRUGS (5)
  1. AMLODIPINE BESYLATE [Suspect]
     Active Substance: AMLODIPINE BESYLATE
     Indication: Squamous cell carcinoma
     Dosage: UNK
     Route: 065
  2. FUROSEMIDE [Suspect]
     Active Substance: FUROSEMIDE
     Indication: Squamous cell carcinoma
     Dosage: UNK
     Route: 065
  3. DEXAMETHASONE [Suspect]
     Active Substance: DEXAMETHASONE
     Indication: Squamous cell carcinoma
     Dosage: UNK
     Route: 065
  4. MANNITOL [Suspect]
     Active Substance: MANNITOL
     Indication: Squamous cell carcinoma
     Dosage: UNK
     Route: 065
  5. ACETAZOLAMIDE [Suspect]
     Active Substance: ACETAZOLAMIDE

REACTIONS (4)
  - Hyponatraemia [Fatal]
  - Lymphoedema [Unknown]
  - Blood pressure fluctuation [Unknown]
  - Hyperglycaemia [Unknown]
